FAERS Safety Report 6934346-X (Version None)
Quarter: 2010Q3

REPORT INFORMATION
  Report Type: 
  Country: None (occurrence: None)
  Receive Date: 20100820
  Receipt Date: 20100816
  Transmission Date: 20110219
  Serious: Yes (Disabling)
  Sender: FDA-Public Use
  Company Number: A0876104A

PATIENT
  Age: 73 Year
  Sex: Male

DRUGS (4)
  1. LOVAZA [Suspect]
     Indication: ANTIOXIDANT THERAPY
     Dosage: 1G TWICE PER DAY
     Route: 048
     Dates: start: 20090101, end: 20100813
  2. CRESTOR [Concomitant]
  3. COREG [Concomitant]
  4. LOTREL [Concomitant]

REACTIONS (3)
  - AGEUSIA [None]
  - ANOSMIA [None]
  - PAROSMIA [None]
